FAERS Safety Report 10080683 (Version 2)
Quarter: 2014Q3

REPORT INFORMATION
  Report Type: Spontaneous
  Country: FR (occurrence: None)
  Receive Date: 20140414
  Receipt Date: 20140724
  Transmission Date: 20150326
  Serious: Yes (Other)
  Sender: FDA-Public Use
  Company Number: NGX_02332_2014

PATIENT
  Age: 43 Year
  Sex: Female

DRUGS (3)
  1. TRAMADOL [Concomitant]
     Active Substance: TRAMADOL
  2. LYRICA [Concomitant]
     Active Substance: PREGABALIN
  3. QUTENZA [Suspect]
     Active Substance: CAPSAICIN
     Indication: NEURALGIA
     Dosage: (1 DF, [ON BELLY])
     Route: 061
     Dates: start: 20140328, end: 20140328

REACTIONS (8)
  - Erythema [None]
  - Application site burn [None]
  - Application site haematoma [None]
  - Application site pain [None]
  - Burns first degree [None]
  - Application site erythema [None]
  - Application site hyperaesthesia [None]
  - Dysstasia [None]

NARRATIVE: CASE EVENT DATE: 20140328
